FAERS Safety Report 6519148-0 (Version None)
Quarter: 2009Q4

REPORT INFORMATION
  Report Type: 
  Country: None (occurrence: None)
  Receive Date: 20091228
  Receipt Date: 20091214
  Transmission Date: 20100525
  Serious: Yes (Other)
  Sender: FDA-Public Use
  Company Number: US-PFIZER INC-2008011854

PATIENT
  Sex: Female
  Weight: 63.5 kg

DRUGS (8)
  1. ZOLOFT [Suspect]
     Indication: DEPRESSION
     Dosage: DAILY: EVERY DAY
     Route: 048
     Dates: start: 20031209
  2. CHEMOTHERAPY NOS [Suspect]
     Indication: OVARIAN CANCER
     Route: 042
     Dates: start: 20050401
  3. CYMBALTA [Suspect]
     Dates: start: 20070101
  4. LOPRESSOR [Concomitant]
     Indication: HYPERTENSION
  5. MULTI-VITAMINS [Concomitant]
  6. CALCIUM [Concomitant]
  7. IRON [Concomitant]
  8. PROTONIX [Concomitant]
     Indication: PROPHYLAXIS

REACTIONS (8)
  - ANAEMIA [None]
  - BALANCE DISORDER [None]
  - CARBOHYDRATE ANTIGEN 125 INCREASED [None]
  - FATIGUE [None]
  - MUSCLE SPASMS [None]
  - MUSCULAR WEAKNESS [None]
  - OVARIAN CANCER [None]
  - PELVIC MASS [None]
